FAERS Safety Report 15402876 (Version 1)
Quarter: 2018Q3

REPORT INFORMATION
  Report Type: Spontaneous
  Country: US (occurrence: US)
  Receive Date: 20180917
  Receipt Date: 20180917
  Transmission Date: 20181010
  Serious: Yes (Hospitalization)
  Sender: FDA-Public Use
  Company Number: None

PATIENT
  Age: 58 Year
  Sex: Female
  Weight: 99.9 kg

DRUGS (7)
  1. CODEINE SULFATE. [Suspect]
     Active Substance: CODEINE SULFATE
     Indication: MUSCULOSKELETAL CHEST PAIN
     Dosage: ?          QUANTITY:1 TABLET(S);OTHER FREQUENCY:EVERY 3 HOURS;?
     Route: 048
  2. LIQUID CALCIUM [Concomitant]
  3. CODEINE SULFATE 60MG TABLETS [Suspect]
     Active Substance: CODEINE SULFATE
     Indication: MUSCULOSKELETAL CHEST PAIN
     Dosage: ?          QUANTITY:1 TABLET(S);OTHER FREQUENCY:EVERY 3 HOURS;?
     Route: 048
  4. CODEINE SULFATE 60MG TABLETS [Suspect]
     Active Substance: CODEINE SULFATE
     Indication: PERITONSILLAR ABSCESS
     Dosage: ?          QUANTITY:1 TABLET(S);OTHER FREQUENCY:EVERY 3 HOURS;?
     Route: 048
  5. CODEINE SULFATE 60MG TABLETS [Suspect]
     Active Substance: CODEINE SULFATE
     Indication: ABSCESS RUPTURE
     Dosage: ?          QUANTITY:1 TABLET(S);OTHER FREQUENCY:EVERY 3 HOURS;?
     Route: 048
  6. ATENOLOL. [Concomitant]
     Active Substance: ATENOLOL
  7. VITAMIN D [Concomitant]
     Active Substance: CHOLECALCIFEROL

REACTIONS (5)
  - Chest pain [None]
  - Accidental overdose [None]
  - Respiratory arrest [None]
  - Prescription form tampering [None]
  - Dyspnoea [None]

NARRATIVE: CASE EVENT DATE: 20180728
